FAERS Safety Report 14125345 (Version 1)
Quarter: 2017Q4

REPORT INFORMATION
  Report Type: Report from Study
  Country: JP (occurrence: JP)
  Receive Date: 20171025
  Receipt Date: 20171025
  Transmission Date: 20180321
  Serious: Yes (Other)
  Sender: FDA-Public Use
  Company Number: JP-TEVA-818034ROM

PATIENT
  Age: 76 Year
  Sex: Male

DRUGS (2)
  1. TOCILIZUMAB. [Suspect]
     Active Substance: TOCILIZUMAB
     Indication: MICROSCOPIC POLYANGIITIS
     Route: 041
  2. PREDNISOLONE. [Suspect]
     Active Substance: PREDNISOLONE
     Indication: MICROSCOPIC POLYANGIITIS
     Dosage: 70MG/DAY (1 MG/KG/DAY) FOR 2 WEEKS AND THEN TAPERED
     Route: 065

REACTIONS (2)
  - Cellulitis [Unknown]
  - Infected skin ulcer [Unknown]
